FAERS Safety Report 12500378 (Version 5)
Quarter: 2016Q4

REPORT INFORMATION
  Report Type: Spontaneous
  Country: US (occurrence: US)
  Receive Date: 20160627
  Receipt Date: 20161103
  Transmission Date: 20170207
  Serious: Yes (Hospitalization, Other)
  Sender: FDA-Public Use
  Company Number: US-PFIZER INC-2016292308

PATIENT
  Age: 59 Year
  Sex: Female
  Weight: 67 kg

DRUGS (18)
  1. TOVIAZ [Interacting]
     Active Substance: FESOTERODINE FUMARATE
     Dosage: 8 MG, DAILY
     Dates: start: 2016
  2. TOVIAZ [Interacting]
     Active Substance: FESOTERODINE FUMARATE
     Dosage: 18 MG, 1X/DAY
  3. MULTIPLE VITAMINS WITH MINERALS [Concomitant]
     Dosage: UNK
     Route: 048
  4. TOVIAZ [Interacting]
     Active Substance: FESOTERODINE FUMARATE
     Indication: BLADDER DISORDER
     Dosage: 8 MG, 1 TABLET DAILY
     Route: 048
     Dates: start: 20160621, end: 2016
  5. EFFEXOR XR [Interacting]
     Active Substance: VENLAFAXINE HYDROCHLORIDE
     Dosage: UNK
  6. TOVIAZ [Suspect]
     Active Substance: FESOTERODINE FUMARATE
     Indication: URINARY INCONTINENCE
     Dosage: 4 MG, 1 TABLET 1X/DAY
     Route: 048
  7. PREMARIN [Interacting]
     Active Substance: ESTROGENS, CONJUGATED
     Indication: HYSTERECTOMY
     Dosage: 1.25 MG, 1X/DAY
     Route: 048
  8. VENTOLIN HFA [Concomitant]
     Active Substance: ALBUTEROL SULFATE
     Dosage: (108 (90 BASE) MCG/ACT, INHALE 2 PUFFS, 4X/DAY
     Route: 055
  9. CHOLECALCIFEROL [Concomitant]
     Active Substance: CHOLECALCIFEROL
     Dosage: 1000 IU, DAILY
     Route: 048
  10. CLONAZEPAM. [Concomitant]
     Active Substance: CLONAZEPAM
     Indication: ANXIETY
     Dosage: 2 MG, 1X/DAY
     Route: 048
  11. CLONAZEPAM. [Concomitant]
     Active Substance: CLONAZEPAM
     Indication: SLEEP DISORDER
  12. FISH OIL [Concomitant]
     Active Substance: FISH OIL
     Dosage: 1290 MG, UNK
  13. TOVIAZ [Interacting]
     Active Substance: FESOTERODINE FUMARATE
     Dosage: 4 MG, DAILY
     Dates: start: 2016, end: 2016
  14. VITAMIN C [Concomitant]
     Active Substance: ASCORBIC ACID
     Dosage: UNK
  15. VITAMIN D3 [Concomitant]
     Active Substance: CHOLECALCIFEROL
     Dosage: UNK
  16. VITAMIN B12 [Concomitant]
     Active Substance: CYANOCOBALAMIN
     Dosage: UNK
  17. FISH OIL [Concomitant]
     Active Substance: FISH OIL
     Dosage: 1200 MG, 1X/DAY
     Route: 048
  18. TRAZODONE [Concomitant]
     Active Substance: TRAZODONE HYDROCHLORIDE
     Dosage: 100 MG, 1X/DAY (BEDTIME)
     Route: 048

REACTIONS (17)
  - Dry mouth [Recovered/Resolved]
  - Gastrooesophageal reflux disease [Recovered/Resolved]
  - Feeling abnormal [Unknown]
  - Depressed mood [Recovered/Resolved]
  - Drug interaction [Unknown]
  - Paranoia [Unknown]
  - Abdominal discomfort [Unknown]
  - Pollakiuria [Recovered/Resolved]
  - Intentional product use issue [Recovered/Resolved]
  - Sexual dysfunction [Unknown]
  - Sleep disorder [Unknown]
  - Suicide attempt [Recovered/Resolved]
  - Depression [Unknown]
  - Functional gastrointestinal disorder [Unknown]
  - Drug ineffective [Recovered/Resolved]
  - Cystitis [Recovered/Resolved]
  - Bradyphrenia [Unknown]

NARRATIVE: CASE EVENT DATE: 2016
